FAERS Safety Report 15567864 (Version 2)
Quarter: 2019Q1

REPORT INFORMATION
  Report Type: Spontaneous
  Country: FR (occurrence: FR)
  Receive Date: 20181030
  Receipt Date: 20190314
  Transmission Date: 20190417
  Serious: Yes (Other)
  Sender: FDA-Public Use
  Company Number: FR-MYLANLABS-2018M1080806

PATIENT
  Age: 69 Year
  Sex: Male

DRUGS (6)
  1. FORMOTEROL [Suspect]
     Active Substance: FORMOTEROL
     Dosage: UNK UNK, UNKNOWN FREQ.
     Route: 055
  2. FORMOTEROL [Suspect]
     Active Substance: FORMOTEROL
     Indication: ASTHMA
     Dosage: 2 DF, UNKNOWN FREQ. (IN CASE OF CRISIS)
     Route: 055
  3. FORMOTEROL [Suspect]
     Active Substance: FORMOTEROL
     Dosage: 2 DF, UNKNOWN FREQ. (IN CASE OF CRISIS)
     Route: 055
     Dates: start: 2008
  4. FORMOTEROL [Suspect]
     Active Substance: FORMOTEROL
     Dosage: 2 DF, UNK (IN CASE OF CRISIS)
     Dates: start: 2008
  5. SINGULAIR [Concomitant]
     Active Substance: MONTELUKAST SODIUM
     Indication: PRODUCT USED FOR UNKNOWN INDICATION
     Dosage: UNK UNK, UNKNOWN FREQ.
     Route: 065
  6. AERIUS                             /01009701/ [Concomitant]
     Active Substance: EBASTINE
     Indication: PRODUCT USED FOR UNKNOWN INDICATION
     Dosage: UNK UNK, UNKNOWN FREQ.
     Route: 065

REACTIONS (4)
  - Drug resistance [Unknown]
  - Incorrect dose administered [Unknown]
  - Tachyarrhythmia [Unknown]
  - Off label use [Unknown]
